FAERS Safety Report 7284397-3 (Version None)
Quarter: 2011Q1

REPORT INFORMATION
  Report Type: 
  Country: None (occurrence: None)
  Receive Date: 20110209
  Receipt Date: 20110207
  Transmission Date: 20110831
  Serious: Yes (Hospitalization, Other)
  Sender: FDA-Public Use
  Company Number: DE-ABBOTT-10P-062-0643645-00

PATIENT
  Age: 61 Year
  Sex: Female

DRUGS (3)
  1. CORTISONE [Concomitant]
     Indication: RHEUMATOID ARTHRITIS
     Dosage: 5-7.5 MG
  2. ANALGETICS (NOT SPECIFIED) [Concomitant]
     Indication: PAIN
  3. HUMIRA [Suspect]
     Indication: RHEUMATOID ARTHRITIS
     Dates: start: 20090301, end: 20090901

REACTIONS (3)
  - LARYNGITIS [None]
  - LEUKOPLAKIA [None]
  - NEOPLASM MALIGNANT [None]
